FAERS Safety Report 6348668-7 (Version None)
Quarter: 2009Q3

REPORT INFORMATION
  Report Type: 
  Country: None (occurrence: None)
  Receive Date: 20090911
  Receipt Date: 20090831
  Transmission Date: 20100115
  Serious: Yes (Hospitalization)
  Sender: FDA-Public Use
  Company Number: KR-PFIZER INC-2009257339

PATIENT
  Age: 57 Year

DRUGS (8)
  1. SUNITINIB MALATE [Suspect]
     Indication: HEPATIC NEOPLASM MALIGNANT
     Dosage: 37.5 MG, 1X/DAY
     Route: 048
     Dates: start: 20090717
  2. SUNITINIB MALATE [Suspect]
     Dosage: 25 MG, 1X/DAY
     Route: 048
     Dates: start: 20090825
  3. LAMIVUDINE [Concomitant]
     Indication: HEPATITIS
     Dosage: 100 MG, 1X/DAY
     Dates: start: 20090717
  4. PROPRANOLOL [Concomitant]
     Indication: PROPHYLAXIS
     Dosage: 40 MG, 1X/DAY
     Dates: start: 20090713
  5. FAMOTIDINE [Concomitant]
     Indication: GASTRITIS
     Dosage: 20 MG, 2X/DAY
     Dates: start: 20090701, end: 20090812
  6. SODIUM BICARBONATE [Concomitant]
     Indication: STOMATITIS
     Dosage: 100 ML, AS NEEDED
     Dates: start: 20090727
  7. IBUPROFEN [Concomitant]
     Indication: PYREXIA
     Dosage: 200 MG, 1X/DAY
     Dates: start: 20090808, end: 20090808
  8. LOPERAMIDE [Concomitant]
     Indication: DIARRHOEA
     Dosage: 2 MG, 1X/DAY
     Dates: start: 20090803, end: 20090811

REACTIONS (1)
  - ENTERITIS [None]
